FAERS Safety Report 4279091-7 (Version None)
Quarter: 2004Q1

REPORT INFORMATION
  Report Type: 
  Country: None (occurrence: None)
  Receive Date: 20040127
  Receipt Date: 20031028
  Transmission Date: 20041129
  Serious: Yes (Death)
  Sender: FDA-Public Use
  Company Number: PHBS2003JP12071

PATIENT
  Age: 75 Year
  Sex: Female
  Weight: 53 kg

DRUGS (1)
  1. VOLTAREN [Suspect]
     Indication: HEADACHE
     Dosage: 50 MG/DAY
     Route: 054
     Dates: start: 20031026, end: 20031026

REACTIONS (16)
  - ANGIOPLASTY [None]
  - BLOOD CREATINE PHOSPHOKINASE INCREASED [None]
  - BLOOD PRESSURE INCREASED [None]
  - CARDIAC ARREST [None]
  - COAGULOPATHY [None]
  - CORONARY ARTERY OCCLUSION [None]
  - CORONARY ARTERY STENOSIS [None]
  - HAEMODIALYSIS [None]
  - HEART RATE INCREASED [None]
  - HYPOTENSION [None]
  - HYPOTHERMIA [None]
  - HYPOXIA [None]
  - MYOCARDIAL INFARCTION [None]
  - RESPIRATORY RATE DECREASED [None]
  - SHOCK [None]
  - SOMNOLENCE [None]
